FAERS Safety Report 9126513 (Version 2)
Quarter: 2013Q1

REPORT INFORMATION
  Report Type: Spontaneous
  Country: US (occurrence: None)
  Receive Date: 20130130
  Receipt Date: 20130221
  Transmission Date: 20140127
  Serious: Yes (Death)
  Sender: FDA-Public Use
  Company Number: 1301-120

PATIENT
  Sex: 0

DRUGS (1)
  1. EYLEA [Suspect]
     Dates: start: 20121025

REACTIONS (3)
  - Ischaemic cardiomyopathy [None]
  - Cardio-respiratory arrest [None]
  - Myocardial infarction [None]
